FAERS Safety Report 7306766-5 (Version None)
Quarter: 2011Q1

REPORT INFORMATION
  Report Type: 
  Country: None (occurrence: None)
  Receive Date: 20110222
  Receipt Date: 20110208
  Transmission Date: 20110831
  Serious: Yes (Hospitalization, Other)
  Sender: FDA-Public Use
  Company Number: FR-WATSON-2011-01156

PATIENT
  Sex: Female

DRUGS (5)
  1. ALBUTEROL SULFATE AUTOHALER [Suspect]
     Indication: BRONCHIOLITIS
     Dosage: UNK
     Route: 055
     Dates: start: 20110115, end: 20110117
  2. SOLU-MEDROL [Concomitant]
     Indication: BRONCHIOLITIS
     Dosage: 6 MG, UNKNOWN
     Route: 042
     Dates: start: 20110115, end: 20110117
  3. PERFALGAN [Concomitant]
     Indication: PRODUCT USED FOR UNKNOWN INDICATION
     Dosage: UNK
     Dates: start: 20110115, end: 20110116
  4. JOSACINE                           /00273601/ [Concomitant]
     Indication: PRODUCT USED FOR UNKNOWN INDICATION
     Dosage: UNK
     Dates: start: 20110116, end: 20110121
  5. CELESTENE                          /00008501/ [Concomitant]
     Indication: PRODUCT USED FOR UNKNOWN INDICATION

REACTIONS (2)
  - OXYGEN SATURATION ABNORMAL [None]
  - RESPIRATORY DISORDER [None]
